FAERS Safety Report 17657084 (Version 7)
Quarter: 2020Q4

REPORT INFORMATION
  Report Type: Spontaneous
  Country: US (occurrence: US)
  Receive Date: 20200410
  Receipt Date: 20201209
  Transmission Date: 20210113
  Serious: Yes (Other)
  Sender: FDA-Public Use
  Company Number: US-PFIZER INC-2020147685

PATIENT
  Age: 69 Year
  Sex: Male
  Weight: 74.84 kg

DRUGS (7)
  1. RAPAMUNE [Suspect]
     Active Substance: SIROLIMUS
     Dosage: 1.5 MG, DAILY (RAPAMUNE 0.5MG, 1 TAB PO DAILY , RAPAMUNE 1MG,TAKE 1 TAB PO DAILY (TOTAL 1.5MG DAILY)
     Route: 048
  2. RAPAMUNE [Suspect]
     Active Substance: SIROLIMUS
     Dosage: 2 MG (2 TABLETS OF 1 MG), DAILY
     Route: 048
     Dates: end: 202004
  3. RAPAMUNE [Suspect]
     Active Substance: SIROLIMUS
     Dosage: 2 MG (2 TABLETS OF 1 MG), DAILY
     Route: 048
     Dates: start: 202004
  4. RAPAMUNE [Suspect]
     Active Substance: SIROLIMUS
     Dosage: 1 MG, DAILY [0.5MG AND 1MG -TAKE 1 TAB EACH PO (PER ORAL) DAILY]
     Route: 048
  5. RAPAMUNE [Suspect]
     Active Substance: SIROLIMUS
     Indication: LIVER TRANSPLANT
     Dosage: 1 MG, 2X/DAY
     Route: 048
  6. RAPAMUNE [Suspect]
     Active Substance: SIROLIMUS
     Dosage: 4 MG (2 TABLETS OF 2 MG), DAILY
     Route: 048
  7. RAPAMUNE [Suspect]
     Active Substance: SIROLIMUS
     Dosage: 0.5 MG, DAILY, [0.5MG AND 1MG -TAKE 1 TAB EACH PO (PER ORAL) DAILY]
     Route: 048

REACTIONS (5)
  - Off label use [Unknown]
  - Intentional product misuse [Unknown]
  - Myocardial infarction [Unknown]
  - Drug level increased [Unknown]
  - Product use in unapproved indication [Unknown]

NARRATIVE: CASE EVENT DATE: 202004
